FAERS Safety Report 8508795-2 (Version None)
Quarter: 2012Q3

REPORT INFORMATION
  Report Type: 
  Country: None (occurrence: None)
  Receive Date: 20120713
  Receipt Date: 20120705
  Transmission Date: 20120928
  Serious: No
  Sender: FDA-Public Use
  Company Number: US-B.I. PHARMACEUTICALS,INC./RIDGEFIELD-2012-BP-15220BP

PATIENT
  Sex: Male

DRUGS (1)
  1. TRADJENTA [Suspect]

REACTIONS (1)
  - INTENTIONAL OVERDOSE [None]
